FAERS Safety Report 17329429 (Version 6)
Quarter: 2020Q3

REPORT INFORMATION
  Report Type: Report from Study
  Country: US (occurrence: US)
  Receive Date: 20200127
  Receipt Date: 20200921
  Transmission Date: 20201102
  Serious: Yes (Life-Threatening, Hospitalization)
  Sender: FDA-Public Use
  Company Number: US-GILEAD-2020-0448249

PATIENT
  Age: 48 Year
  Sex: Male
  Weight: 77 kg

DRUGS (106)
  1. AXICABTAGENE CILOLEUCEL [Suspect]
     Active Substance: AXICABTAGENE CILOLEUCEL
     Indication: NON-HODGKIN^S LYMPHOMA REFRACTORY
     Dosage: 1 DOSAGE FORM
     Route: 042
     Dates: start: 20200108, end: 20200108
  2. LEVOFLOXACIN. [Concomitant]
     Active Substance: LEVOFLOXACIN
     Dosage: 750,MG,DAILY
     Route: 048
     Dates: start: 20200119, end: 20200122
  3. DIPHENHYDRAMINE. [Concomitant]
     Active Substance: DIPHENHYDRAMINE
     Dosage: 25,MG,DAILY
     Route: 058
     Dates: start: 20200115, end: 20200115
  4. SODIUM CHLORIDE 0.9% [Concomitant]
     Active Substance: SODIUM CHLORIDE
     Dosage: 500,ML,OTHER, BOLUS
     Route: 041
     Dates: start: 20200120, end: 20200120
  5. SODIUM CHLORIDE 0.9% [Concomitant]
     Active Substance: SODIUM CHLORIDE
     Dosage: 1000,ML,OTHER, BOLUS
     Route: 041
     Dates: start: 20200124, end: 20200124
  6. LORAZEPAM. [Concomitant]
     Active Substance: LORAZEPAM
     Dosage: 2,MG,AS NECESSARY
     Route: 041
     Dates: start: 20200124, end: 20200201
  7. LORAZEPAM. [Concomitant]
     Active Substance: LORAZEPAM
     Dosage: 1,MG,AS NECESSARY
     Route: 048
     Dates: start: 20200207
  8. CYCLOPHOSPHAMIDE. [Suspect]
     Active Substance: CYCLOPHOSPHAMIDE
     Indication: BONE MARROW CONDITIONING REGIMEN
     Dosage: 500
     Route: 042
     Dates: start: 20200103, end: 20200105
  9. LIDOCAINE HCL AND EPINEPHRINE [EPINEPHRINE;LIDOCAINE HYDROCHLORIDE] [Concomitant]
     Dosage: 10,ML,DAILY
     Route: 050
     Dates: start: 20200102, end: 20200102
  10. PALONOSETRON. [Concomitant]
     Active Substance: PALONOSETRON HYDROCHLORIDE
     Dosage: 0.25,MG,DAILY
     Route: 041
     Dates: start: 20200103, end: 20200103
  11. LEVETIRACETAM. [Concomitant]
     Active Substance: LEVETIRACETAM
     Dosage: 1500,MG,AS NECESSARY
     Route: 041
     Dates: start: 20200124, end: 20200125
  12. ALLOPURINOL. [Concomitant]
     Active Substance: ALLOPURINOL
     Dosage: 300,MG,DAILY
     Route: 048
     Dates: start: 20200108, end: 20200121
  13. DIPHENHYDRAMINE. [Concomitant]
     Active Substance: DIPHENHYDRAMINE
     Dosage: 25,MG,OTHER
     Route: 048
     Dates: start: 20200108, end: 20200108
  14. DIPHENHYDRAMINE. [Concomitant]
     Active Substance: DIPHENHYDRAMINE
     Dosage: 25,MG,DAILY
     Route: 048
     Dates: start: 20200127, end: 20200127
  15. ACETAMINOPHEN. [Concomitant]
     Active Substance: ACETAMINOPHEN
     Dosage: 650,MG,TWICE DAILY
     Route: 048
     Dates: start: 20200114, end: 20200115
  16. PROCHLORPERAZINE. [Concomitant]
     Active Substance: PROCHLORPERAZINE
     Dosage: 10,MG,AS NECESSARY
     Route: 048
     Dates: start: 20200114, end: 20200120
  17. SODIUM CHLORIDE 0.9% [Concomitant]
     Active Substance: SODIUM CHLORIDE
     Dosage: 500,OTHER,TWICE DAILY
     Route: 041
     Dates: start: 20200103, end: 20200105
  18. LACTATED RINGERS SOLUTION [Concomitant]
     Active Substance: CALCIUM CHLORIDE\POTASSIUM CHLORIDE\SODIUM CHLORIDE\SODIUM LACTATE
     Dosage: 1000,ML,OTHER, BOLUS
     Route: 041
     Dates: start: 20200131, end: 20200131
  19. MAGNESIUM SULFATE. [Concomitant]
     Active Substance: MAGNESIUM SULFATE
     Dosage: 1,OTHER,OTHER,, IN WATER
     Route: 041
     Dates: start: 20200129, end: 20200202
  20. FUROSEMIDE. [Concomitant]
     Active Substance: FUROSEMIDE
     Dosage: 20,MG,OTHER
     Route: 041
     Dates: start: 20200117, end: 20200117
  21. MECLIZINE [Concomitant]
     Active Substance: MECLIZINE HYDROCHLORIDE
     Dosage: 25,MG,AS NECESSARY
     Route: 048
     Dates: start: 20200125, end: 20200128
  22. OXYCODONE [Concomitant]
     Active Substance: OXYCODONE
     Dosage: 5,MG,OTHER
     Route: 048
     Dates: start: 20200123, end: 20200123
  23. DEXTROSE;SODIUM CHLORIDE [Concomitant]
     Dosage: 125,OTHER,OTHER (D5?NS)
     Route: 041
     Dates: start: 20200122, end: 20200122
  24. DEXTROSE;SODIUM CHLORIDE [Concomitant]
     Dosage: 150,OTHER,OTHER (D5?NS)
     Route: 041
     Dates: start: 20200125, end: 20200126
  25. OMEPRAZOLE. [Concomitant]
     Active Substance: OMEPRAZOLE
     Dosage: 20,MG,DAILY
     Route: 048
     Dates: start: 20200317
  26. FENTANYL. [Concomitant]
     Active Substance: FENTANYL
     Dosage: 150,UG,DAILY
     Route: 041
     Dates: start: 20200102, end: 20200102
  27. PEGFILGRASTIM [Concomitant]
     Active Substance: PEGFILGRASTIM
     Dosage: 6,MG,DAILY
     Route: 058
     Dates: start: 20200105, end: 20200105
  28. ACYCLOVIR [ACICLOVIR] [Concomitant]
     Active Substance: ACYCLOVIR
     Dosage: 400,MG,THREE TIMES DAILY
     Route: 048
     Dates: start: 20200107
  29. ACYCLOVIR [ACICLOVIR] [Concomitant]
     Active Substance: ACYCLOVIR
     Dosage: 710,MG,OTHER
     Route: 041
     Dates: start: 20200124, end: 20200125
  30. MAGNESIUM OXIDE. [Concomitant]
     Active Substance: MAGNESIUM OXIDE
     Dosage: 400?800,MG,AS NECESSARY
     Route: 048
     Dates: start: 20200108, end: 20200121
  31. ENOXAPARIN [Concomitant]
     Active Substance: ENOXAPARIN
     Dosage: 40,MG,DAILY
     Route: 058
     Dates: start: 20200108, end: 20200126
  32. ACETAMINOPHEN. [Concomitant]
     Active Substance: ACETAMINOPHEN
     Dosage: 650,MG,OTHER
     Route: 048
     Dates: start: 20200108, end: 20200108
  33. ACETAMINOPHEN. [Concomitant]
     Active Substance: ACETAMINOPHEN
     Dosage: 325,MG,DAILY
     Route: 048
     Dates: start: 20200115, end: 20200115
  34. SODIUM CHLORIDE 0.9% [Concomitant]
     Active Substance: SODIUM CHLORIDE
     Dosage: 250,ML,AS NECESSARY, BOLUS
     Route: 041
     Dates: start: 20200124, end: 20200125
  35. SODIUM CHLORIDE 0.9% [Concomitant]
     Active Substance: SODIUM CHLORIDE
     Dosage: 1000,ML,DAILY, BOLUS
     Route: 041
     Dates: start: 20200127, end: 20200127
  36. SODIUM CHLORIDE 0.9% [Concomitant]
     Active Substance: SODIUM CHLORIDE
     Dosage: 10,OTHER,OTHER
     Route: 041
     Dates: start: 20200108, end: 20200108
  37. CALCIUM GLUCONATE. [Concomitant]
     Active Substance: CALCIUM GLUCONATE
     Dosage: 2,G,DAILY
     Route: 041
     Dates: start: 20200115, end: 20200115
  38. CEFTAZIDIME. [Concomitant]
     Active Substance: CEFTAZIDIME
     Dosage: 2,G,THREE TIMES DAILY
     Route: 041
     Dates: start: 20200116, end: 20200119
  39. LACTATED RINGERS SOLUTION [Concomitant]
     Active Substance: CALCIUM CHLORIDE\POTASSIUM CHLORIDE\SODIUM CHLORIDE\SODIUM LACTATE
     Dosage: 1000,ML,DAILY, BOLUS
     Route: 041
     Dates: start: 20200116, end: 20200116
  40. METRONIDAZOLE. [Concomitant]
     Active Substance: METRONIDAZOLE
     Dosage: 500,MG,OTHER
     Route: 048
     Dates: start: 20200120, end: 20200121
  41. LORAZEPAM. [Concomitant]
     Active Substance: LORAZEPAM
     Dosage: 0.5?1,MG,AS NECESSARY
     Route: 041
     Dates: start: 20200116, end: 20200128
  42. LOPERAMIDE [Concomitant]
     Active Substance: LOPERAMIDE
     Dosage: 4,MG,AS NECESSARY
     Route: 048
     Dates: start: 20200116, end: 20200205
  43. POTASSIUM;SODIUM PHOSPHATE [Concomitant]
     Dosage: 1,OTHER,FOUR TIMES DAILY
     Route: 048
     Dates: start: 20200117, end: 20200118
  44. SIMETHICONE (DIMETHICONE) [Concomitant]
     Active Substance: DIMETHICONE
     Dosage: 80,MG,OTHER
     Route: 048
     Dates: start: 20200118, end: 20200123
  45. FAMOTIDINE. [Concomitant]
     Active Substance: FAMOTIDINE
     Dosage: 20,MG,TWICE DAILY
     Route: 041
     Dates: start: 20200124, end: 20200128
  46. MECLIZINE [Concomitant]
     Active Substance: MECLIZINE HYDROCHLORIDE
     Dosage: 25,MG,THREE TIMES DAILY
     Route: 048
     Dates: start: 20200121, end: 20200123
  47. METHYL SALICYLATE [Concomitant]
     Active Substance: METHYL SALICYLATE
     Dosage: 1,OTHER,AS NECESSARY
     Route: 061
     Dates: start: 20200123, end: 20200123
  48. FLUDARABINE [Suspect]
     Active Substance: FLUDARABINE PHOSPHATE
     Indication: BONE MARROW CONDITIONING REGIMEN
     Dosage: 30
     Route: 042
     Dates: start: 20200103, end: 20200105
  49. MIDAZOLAM. [Concomitant]
     Active Substance: MIDAZOLAM
     Dosage: 4,MG,DAILY
     Route: 041
     Dates: start: 20200102, end: 20200102
  50. SULFAMETHOXAZOLE AND TRIMETHOPRIM [Concomitant]
     Active Substance: SULFAMETHOXAZOLE\TRIMETHOPRIM
     Dosage: 80,MG,DAILY
     Route: 048
     Dates: start: 20200107
  51. LORATADINE. [Concomitant]
     Active Substance: LORATADINE
     Dosage: 10,MG,DAILY
     Route: 048
     Dates: start: 20200108, end: 20200113
  52. CALCIUM GLUCONATE. [Concomitant]
     Active Substance: CALCIUM GLUCONATE
     Dosage: 2,G,DAILY
     Route: 041
     Dates: start: 20200130, end: 20200130
  53. LACTATED RINGERS SOLUTION [Concomitant]
     Active Substance: CALCIUM CHLORIDE\POTASSIUM CHLORIDE\SODIUM CHLORIDE\SODIUM LACTATE
     Dosage: 100,OTHER,AS NECESSARY
     Dates: start: 20200115, end: 20200118
  54. MAGNESIUM SULFATE. [Concomitant]
     Active Substance: MAGNESIUM SULFATE
     Dosage: 2,G,AS NECESSARY
     Route: 041
     Dates: start: 20200117, end: 20200208
  55. ONDANSETRON [Concomitant]
     Active Substance: ONDANSETRON
     Dosage: 8,MG,AS NECESSARY
     Route: 041
     Dates: start: 20200120, end: 20200122
  56. OXYCODONE [Concomitant]
     Active Substance: OXYCODONE
     Dosage: 2.5,MG,OTHER
     Route: 048
     Dates: start: 20200122, end: 20200122
  57. DEXTROSE;SODIUM CHLORIDE [Concomitant]
     Dosage: 75,OTHER,OTHER (D5?NS)
     Route: 041
     Dates: start: 20200126, end: 20200126
  58. CHLORHEXIDINE [Concomitant]
     Active Substance: CHLORHEXIDINE
     Dosage: 4% EXTERNAL LIQUID. 1,OTHER,AS NECESSARY
     Route: 061
     Dates: start: 20200108, end: 20200207
  59. SODIUM CHLORIDE 0.9% [Concomitant]
     Active Substance: SODIUM CHLORIDE
     Dosage: 500,ML,OTHER, BOLUS
     Route: 041
     Dates: start: 20200114, end: 20200114
  60. SODIUM CHLORIDE 0.9% [Concomitant]
     Active Substance: SODIUM CHLORIDE
     Dosage: 1000,ML,DAILY, BOLUS
     Route: 041
     Dates: start: 20200203, end: 20200204
  61. SODIUM CHLORIDE 0.9% [Concomitant]
     Active Substance: SODIUM CHLORIDE
     Dosage: 500,ML,DAILY, BOLUS
     Route: 041
     Dates: start: 20200127, end: 20200127
  62. TOCILIZUMAB. [Concomitant]
     Active Substance: TOCILIZUMAB
     Dosage: 606,MG,OTHER
     Route: 041
     Dates: start: 20200116, end: 20200116
  63. TOCILIZUMAB. [Concomitant]
     Active Substance: TOCILIZUMAB
     Dosage: 606,MG,OTHER
     Route: 041
     Dates: start: 20200117, end: 20200117
  64. FUROSEMIDE. [Concomitant]
     Active Substance: FUROSEMIDE
     Dosage: 20,MG,OTHER
     Route: 041
     Dates: start: 20200118, end: 20200118
  65. DEXTROMETHORPHAN?GUAIFENESIN [Concomitant]
     Active Substance: DEXTROMETHORPHAN\GUAIFENESIN
     Dosage: 10,ML,OTHER
     Route: 048
     Dates: start: 20200118, end: 20200121
  66. CAFFEINE. [Concomitant]
     Active Substance: CAFFEINE
     Dosage: 200,MG,AS NECESSARY
     Route: 048
     Dates: start: 20200123, end: 20200123
  67. MIDAZOLAM. [Concomitant]
     Active Substance: MIDAZOLAM
     Dosage: 1?2,OTHER,OTHER
     Route: 041
     Dates: start: 20200124, end: 20200125
  68. LIDOCAINE. [Concomitant]
     Active Substance: LIDOCAINE
     Dosage: 5,ML,DAILY
     Route: 050
     Dates: start: 20200102, end: 20200102
  69. ACYCLOVIR [ACICLOVIR] [Concomitant]
     Active Substance: ACYCLOVIR
     Dosage: 200,MG,DAILY
     Route: 041
     Dates: start: 20200121, end: 20200121
  70. LEVOFLOXACIN. [Concomitant]
     Active Substance: LEVOFLOXACIN
     Dosage: 500,MG,DAILY
     Route: 048
     Dates: start: 20200107, end: 20200112
  71. LEVETIRACETAM. [Concomitant]
     Active Substance: LEVETIRACETAM
     Dosage: 500,MG,DAILY
     Route: 041
     Dates: start: 20200125, end: 20200125
  72. LEVETIRACETAM. [Concomitant]
     Active Substance: LEVETIRACETAM
     Dosage: 2000,MG,TWICE DAILY
     Route: 048
     Dates: start: 20200128, end: 20200201
  73. ACETAMINOPHEN. [Concomitant]
     Active Substance: ACETAMINOPHEN
     Dosage: 1000,MG,DAILY
     Route: 041
     Dates: start: 20200114, end: 20200114
  74. ACETAMINOPHEN. [Concomitant]
     Active Substance: ACETAMINOPHEN
     Dosage: 1000,MG,OTHER
     Route: 041
     Dates: start: 20200115, end: 20200117
  75. ACETAMINOPHEN. [Concomitant]
     Active Substance: ACETAMINOPHEN
     Dosage: 650,MG,DAILY
     Route: 048
     Dates: start: 20200127, end: 20200127
  76. SODIUM CHLORIDE 0.9% [Concomitant]
     Active Substance: SODIUM CHLORIDE
     Dosage: 1000,ML,OTHER, BOLUS
     Route: 041
     Dates: start: 20200121, end: 20200121
  77. SODIUM CHLORIDE 0.9% [Concomitant]
     Active Substance: SODIUM CHLORIDE
     Dosage: 500,ML,OTHER, BOLUS
     Route: 041
     Dates: start: 20200123, end: 20200123
  78. CALCIUM GLUCONATE. [Concomitant]
     Active Substance: CALCIUM GLUCONATE
     Dosage: 2,G,DAILY
     Route: 041
     Dates: start: 20200123, end: 20200124
  79. LORAZEPAM. [Concomitant]
     Active Substance: LORAZEPAM
     Dosage: 0.5,MG,DAILY
     Route: 048
     Dates: start: 20200126, end: 20200126
  80. FAMOTIDINE. [Concomitant]
     Active Substance: FAMOTIDINE
     Dosage: 20,MG,TWICE DAILY
     Route: 048
     Dates: start: 20200120, end: 20200128
  81. SCOPOLAMINE [HYOSCINE] [Concomitant]
     Active Substance: SCOPOLAMINE
     Dosage: 1,OTHER,OTHER
     Route: 062
     Dates: start: 20200122, end: 20200128
  82. METOCLOPRAMIDE HCL [Concomitant]
     Active Substance: METOCLOPRAMIDE HYDROCHLORIDE
     Dosage: 10,MG,OTHER
     Route: 048
     Dates: start: 20200123, end: 20200123
  83. MESNA. [Suspect]
     Active Substance: MESNA
     Indication: BONE MARROW CONDITIONING REGIMEN
     Dosage: 125
     Route: 042
     Dates: start: 20200103, end: 20200105
  84. LEVOFLOXACIN. [Concomitant]
     Active Substance: LEVOFLOXACIN
     Dosage: 750,MG,OTHER, PREMIX
     Route: 041
     Dates: start: 20200121, end: 20200122
  85. LEVETIRACETAM. [Concomitant]
     Active Substance: LEVETIRACETAM
     Dosage: 1000,MG,OTHER
     Route: 041
     Dates: start: 20200124, end: 20200124
  86. ACETAMINOPHEN. [Concomitant]
     Active Substance: ACETAMINOPHEN
     Dosage: 650,MG,AS NECESSARY
     Route: 054
     Dates: start: 20200127, end: 20200127
  87. PROCHLORPERAZINE EDISYLATE. [Concomitant]
     Active Substance: PROCHLORPERAZINE EDISYLATE
     Dosage: 5,MG,OTHER
     Route: 041
     Dates: start: 20200125, end: 20200125
  88. TOCILIZUMAB. [Concomitant]
     Active Substance: TOCILIZUMAB
     Dosage: 586,MG,OTHER
     Route: 041
     Dates: start: 20200115, end: 20200115
  89. DEXAMETHASONE. [Concomitant]
     Active Substance: DEXAMETHASONE
     Dosage: 10,MG,OTHER
     Route: 041
     Dates: start: 20200116, end: 20200116
  90. DEXAMETHASONE. [Concomitant]
     Active Substance: DEXAMETHASONE
     Dosage: 10,MG,OTHER
     Route: 041
     Dates: start: 20200117, end: 20200117
  91. DEXAMETHASONE. [Concomitant]
     Active Substance: DEXAMETHASONE
     Dosage: 10,MG,DAILY
     Route: 041
     Dates: start: 20200124, end: 20200124
  92. LORAZEPAM. [Concomitant]
     Active Substance: LORAZEPAM
     Dosage: 4,MG,DAILY
     Route: 041
     Dates: start: 20200124, end: 20200124
  93. GUAIFENESIN. [Concomitant]
     Active Substance: GUAIFENESIN
     Dosage: 400,MG,OTHER
     Route: 048
     Dates: start: 20200117, end: 20200118
  94. CARBOXYMETHYLCELLULOSE [Concomitant]
     Active Substance: CARBOXYMETHYLCELLULOSE
     Dosage: 2,OTHER,AS NECESSARY
     Route: 050
     Dates: start: 20200118, end: 20200118
  95. POTASSIUM CHLORIDE. [Concomitant]
     Active Substance: POTASSIUM CHLORIDE
     Dosage: 20,OTHER,AS NECESSARY
     Route: 041
     Dates: start: 20200120, end: 20200131
  96. LEVETIRACETAM. [Concomitant]
     Active Substance: LEVETIRACETAM
     Dosage: 750,MG,EVERY 12 HOURS
     Route: 048
     Dates: start: 20200107, end: 20200123
  97. LEVETIRACETAM. [Concomitant]
     Active Substance: LEVETIRACETAM
     Dosage: 2000,MG,TWICE DAILY
     Route: 041
     Dates: start: 20200125, end: 20200128
  98. MAGNESIUM OXIDE. [Concomitant]
     Active Substance: MAGNESIUM OXIDE
     Dosage: 400,MG,OTHER
     Route: 048
     Dates: start: 20200123, end: 20200123
  99. ENOXAPARIN [Concomitant]
     Active Substance: ENOXAPARIN
     Dosage: 80,MG,EVERY 12 HOURS
     Route: 041
     Dates: start: 20200130, end: 20200309
  100. ACETAMINOPHEN. [Concomitant]
     Active Substance: ACETAMINOPHEN
     Dosage: 650,MG,AS NECESSARY
     Route: 048
     Dates: start: 20200121, end: 20200129
  101. PROCHLORPERAZINE EDISYLATE. [Concomitant]
     Active Substance: PROCHLORPERAZINE EDISYLATE
     Dosage: 10,MG,AS NECESSARY
     Route: 041
     Dates: start: 20200114, end: 20200121
  102. SODIUM CHLORIDE 0.9% [Concomitant]
     Active Substance: SODIUM CHLORIDE
     Dosage: 1000,ML,AS NECESSARY, BOLUS
     Route: 041
     Dates: start: 20200115, end: 20200115
  103. OXYGEN. [Concomitant]
     Active Substance: OXYGEN
     Dosage: 1?4,L/MIN,AS NECESSARY
     Dates: start: 20200115, end: 20200117
  104. DEXAMETHASONE. [Concomitant]
     Active Substance: DEXAMETHASONE
     Dosage: 10,MG,OTHER
     Route: 041
     Dates: start: 20200115, end: 20200115
  105. METRONIDAZOLE. [Concomitant]
     Active Substance: METRONIDAZOLE
     Dosage: 500,MG,OTHER
     Route: 041
     Dates: start: 20200116, end: 20200120
  106. FAMOTIDINE. [Concomitant]
     Active Substance: FAMOTIDINE
     Dosage: 20,MG,TWICE DAILY
     Route: 048
     Dates: start: 20200128, end: 20200202

REACTIONS (2)
  - Seizure [Recovered/Resolved]
  - Seizure [Recovered/Resolved]

NARRATIVE: CASE EVENT DATE: 20200124
